FAERS Safety Report 7432912-9 (Version None)
Quarter: 2011Q2

REPORT INFORMATION
  Report Type: 
  Country: None (occurrence: None)
  Receive Date: 20110422
  Receipt Date: 20110419
  Transmission Date: 20111010
  Serious: No
  Sender: FDA-Public Use
  Company Number: US-PFIZER INC-2011077463

PATIENT
  Sex: Female
  Weight: 46 kg

DRUGS (14)
  1. EFFEXOR XR [Suspect]
     Indication: DEPRESSION
     Dosage: 150 MG, 1X/DAY
  2. EFFEXOR XR [Concomitant]
     Dosage: 75 MG DAILY
     Route: 048
     Dates: end: 20110319
  3. EFFEXOR XR [Concomitant]
  4. KLONOPIN [Concomitant]
     Indication: ANXIETY
     Dosage: 2 MG DAILY
     Route: 048
  5. SEROQUEL [Concomitant]
     Indication: ANXIETY
  6. EFFEXOR XR [Suspect]
     Indication: ANXIETY
     Dosage: 75 MG, 1X/DAY
  7. SEROQUEL [Concomitant]
     Indication: SLEEP DISORDER
     Dosage: 300 MG DAILY
     Route: 048
  8. LAMICTAL [Concomitant]
     Indication: ANXIETY
     Dosage: 100 MG, 2X/DAY
     Route: 048
  9. LAMICTAL [Concomitant]
     Indication: DEPRESSION
  10. VENLAFAXINE HCL [Suspect]
     Indication: ANXIETY
     Dosage: 75 MG DAILY
     Route: 048
     Dates: start: 20110320
  11. VENLAFAXINE HCL [Suspect]
     Indication: DEPRESSION
  12. LEXAPRO [Concomitant]
     Indication: DEPRESSION
  13. SEROQUEL [Concomitant]
     Indication: DEPRESSION
  14. LEXAPRO [Concomitant]
     Indication: ANXIETY
     Dosage: 20 MG DAILY
     Route: 048

REACTIONS (2)
  - ANXIETY [None]
  - DEPRESSION [None]
